FAERS Safety Report 20321610 (Version 2)
Quarter: 2022Q1

REPORT INFORMATION
  Report Type: Spontaneous
  Country: US (occurrence: US)
  Receive Date: 20220111
  Receipt Date: 20220224
  Transmission Date: 20220424
  Serious: No
  Sender: FDA-Public Use
  Company Number: US-PFIZER INC-202101798244

PATIENT
  Age: 7 Year
  Sex: Female
  Weight: 39.92 kg

DRUGS (3)
  1. GENOTROPIN [Suspect]
     Active Substance: SOMATROPIN
     Dosage: UNK
  2. HYDROCORTISONE [Concomitant]
     Active Substance: HYDROCORTISONE
  3. LEVOTHYROXINE [Concomitant]
     Active Substance: LEVOTHYROXINE

REACTIONS (4)
  - Drug dose omission by device [Unknown]
  - Product quality issue [Unknown]
  - Device issue [Unknown]
  - Device leakage [Unknown]
